FAERS Safety Report 23903671 (Version 3)
Quarter: 2024Q3

REPORT INFORMATION
  Report Type: Report from Study
  Country: MX (occurrence: MX)
  Receive Date: 20240527
  Receipt Date: 20240708
  Transmission Date: 20241016
  Serious: Yes (Life-Threatening, Hospitalization, Disabling, Other)
  Sender: NOVARTIS
  Company Number: MX-002147023-NVSC2024MX094868

PATIENT
  Age: 25 Year
  Sex: Female
  Weight: 65 kg

DRUGS (4)
  1. GILENYA [Suspect]
     Active Substance: FINGOLIMOD HYDROCHLORIDE
     Indication: Multiple sclerosis
     Dosage: 0.5 MG, QD
     Route: 048
     Dates: start: 20230726, end: 202308
  2. GILENYA [Suspect]
     Active Substance: FINGOLIMOD HYDROCHLORIDE
     Dosage: UNK
     Route: 048
     Dates: start: 20240409
  3. GILENYA [Suspect]
     Active Substance: FINGOLIMOD HYDROCHLORIDE
     Dosage: 0.5 MG, QD
     Route: 048
     Dates: start: 20240405
  4. FOLIC ACID [Concomitant]
     Active Substance: FOLIC ACID
     Indication: Vitamin supplementation
     Dosage: 1 DOSAGE FORM, QD
     Route: 048
     Dates: start: 202308, end: 20240405

REACTIONS (21)
  - Multiple sclerosis relapse [Not Recovered/Not Resolved]
  - Coma [Recovered/Resolved]
  - Gait disturbance [Recovered/Resolved with Sequelae]
  - Coordination abnormal [Recovered/Resolved with Sequelae]
  - Dyspnoea [Recovered/Resolved]
  - Eating disorder [Recovered/Resolved]
  - Mobility decreased [Not Recovered/Not Resolved]
  - Tremor [Not Recovered/Not Resolved]
  - Bleeding time prolonged [Unknown]
  - Speech disorder [Unknown]
  - Disorientation [Unknown]
  - Mean cell haemoglobin concentration decreased [Unknown]
  - Red cell distribution width increased [Unknown]
  - Mean platelet volume decreased [Unknown]
  - Eosinophil count decreased [Unknown]
  - Neutrophil count increased [Unknown]
  - Coagulation time prolonged [Unknown]
  - Blood alkaline phosphatase increased [Unknown]
  - Globulins decreased [Unknown]
  - Blood creatinine decreased [Unknown]
  - Lymphocyte count decreased [Unknown]

NARRATIVE: CASE EVENT DATE: 20230801
